FAERS Safety Report 21200633 (Version 1)
Quarter: 2022Q3

REPORT INFORMATION
  Report Type: Report from Study
  Country: US (occurrence: US)
  Receive Date: 20220811
  Receipt Date: 20220811
  Transmission Date: 20221027
  Serious: Yes (Other)
  Sender: FDA-Public Use
  Company Number: US-GSKCCFUS-Case-01454873_AE-83355

PATIENT

DRUGS (1)
  1. BELIMUMAB [Suspect]
     Active Substance: BELIMUMAB
     Indication: Product used for unknown indication
     Dosage: UNK
     Dates: start: 201708, end: 201711

REACTIONS (7)
  - Systemic lupus erythematosus [Unknown]
  - Renal disorder [Unknown]
  - Liver disorder [Unknown]
  - Weight increased [Unknown]
  - Joint swelling [Unknown]
  - Wheelchair user [Unknown]
  - Bedridden [Unknown]
